FAERS Safety Report 4611458-7 (Version None)
Quarter: 2005Q2

REPORT INFORMATION
  Report Type: 
  Country: None (occurrence: None)
  Receive Date: 20050311
  Receipt Date: 20041116
  Transmission Date: 20051028
  Serious: No
  Sender: FDA-Public Use
  Company Number: 2004-BP-11980BP

PATIENT
  Age: 62 Year
  Sex: Male

DRUGS (8)
  1. SPIRIVA [Suspect]
     Indication: CHRONIC OBSTRUCTIVE PULMONARY DISEASE
     Dosage: 18 MCG (18 MCG), IH
     Route: 055
     Dates: start: 20040901
  2. ALBUTEROL [Concomitant]
  3. BUSPAR [Concomitant]
  4. LOPRESSOR (METOPROLOL SUCCINATE) [Concomitant]
  5. PREDNISONE [Concomitant]
  6. ARTHROTEC [Concomitant]
  7. NEXIUM [Concomitant]
  8. ACETYLSALICYLIC ACID SRT [Concomitant]

REACTIONS (2)
  - FLUSHING [None]
  - HEART RATE INCREASED [None]
